FAERS Safety Report 21415487 (Version 1)
Quarter: 2022Q4

REPORT INFORMATION
  Report Type: Spontaneous
  Country: US (occurrence: None)
  Receive Date: 20221005
  Receipt Date: 20221005
  Transmission Date: 20230112
  Serious: No
  Sender: FDA-Public Use
  Company Number: None

PATIENT
  Age: 79 Year
  Sex: Female
  Weight: 51.26 kg

DRUGS (13)
  1. CYCLOSPORINE MODIFIED [Suspect]
     Active Substance: CYCLOSPORINE
     Indication: Anaemia
     Dosage: FREQUENCY : TWICE A DAY;?
     Route: 048
  2. BIOTIN [Concomitant]
     Active Substance: BIOTIN
  3. CALCIUM CITRATE-MAG MINERALS [Concomitant]
  4. CERAVE [Concomitant]
  5. CLOBETASOL [Concomitant]
     Active Substance: CLOBETASOL
  6. COENZYME Q10 [Concomitant]
     Active Substance: DIETARY SUPPLEMENT\UBIDECARENONE
  7. IRON [Concomitant]
     Active Substance: IRON
  8. MAGNESIUM [Concomitant]
     Active Substance: MAGNESIUM
  9. NEURO-MAG [Concomitant]
  10. NITROGLYCERIN [Concomitant]
     Active Substance: NITROGLYCERIN
  11. NOVOLIN NOS [Concomitant]
     Active Substance: INSULIN HUMAN
  12. REFRESH CLASSIC [Concomitant]
     Active Substance: POLYVINYL ALCOHOL\POVIDONE
  13. VITAMIN D [Concomitant]
     Active Substance: VITAMIN D NOS

REACTIONS (2)
  - Macular degeneration [None]
  - Cataract [None]
